FAERS Safety Report 5056545-7 (Version None)
Quarter: 2006Q3

REPORT INFORMATION
  Report Type: 
  Country: None (occurrence: None)
  Receive Date: 20060720
  Receipt Date: 20060717
  Transmission Date: 20061208
  Serious: Yes (Other)
  Sender: FDA-Public Use
  Company Number: CO-BOEHRINGER INGELHEIM PHARMACEUTICALS, INC.-2006-BP-08326CL

PATIENT

DRUGS (1)
  1. MICARDIS [Suspect]

REACTIONS (1)
  - NEUTROPENIA [None]
